FAERS Safety Report 23349372 (Version 2)
Quarter: 2024Q1

REPORT INFORMATION
  Report Type: Spontaneous
  Country: US (occurrence: US)
  Receive Date: 20231229
  Receipt Date: 20240103
  Transmission Date: 20240410
  Serious: No
  Sender: FDA-Public Use
  Company Number: US-GSK-US2023AMR180423

PATIENT
  Sex: Female

DRUGS (3)
  1. VALTREX [Suspect]
     Active Substance: VALACYCLOVIR HYDROCHLORIDE
     Indication: Breast cancer female
     Dosage: UNK
  2. VALTREX [Suspect]
     Active Substance: VALACYCLOVIR HYDROCHLORIDE
     Indication: Herpes zoster
  3. PERJETA [Concomitant]
     Active Substance: PERTUZUMAB
     Indication: Product used for unknown indication
     Dosage: UNK

REACTIONS (3)
  - Memory impairment [Unknown]
  - Herpes zoster [Unknown]
  - Product use in unapproved indication [Unknown]
